FAERS Safety Report 8455423-0 (Version None)
Quarter: 2012Q2

REPORT INFORMATION
  Report Type: 
  Country: None (occurrence: None)
  Receive Date: 20120621
  Receipt Date: 20120612
  Transmission Date: 20120825
  Serious: Yes (Hospitalization, Other)
  Sender: FDA-Public Use
  Company Number: MX-BRISTOL-MYERS SQUIBB COMPANY-16683989

PATIENT
  Age: 70 Year
  Sex: Female
  Weight: 95 kg

DRUGS (1)
  1. IRBESARTAN AND HYDROCHLOROTHIAZIDE [Suspect]
     Indication: HYPERTENSION
     Dosage: 1 DF = 1/2 TABLET
     Route: 048
     Dates: start: 20080101

REACTIONS (2)
  - MEDICATION ERROR [None]
  - ARTHRALGIA [None]
